FAERS Safety Report 6423074-5 (Version None)
Quarter: 2009Q4

REPORT INFORMATION
  Report Type: 
  Country: None (occurrence: None)
  Receive Date: 20091102
  Receipt Date: 20091021
  Transmission Date: 20100525
  Serious: Yes (Other)
  Sender: FDA-Public Use
  Company Number: NL-JNJFOC-20091007224

PATIENT
  Sex: Male
  Weight: 85 kg

DRUGS (3)
  1. REMICADE [Suspect]
     Indication: CROHN'S DISEASE
     Route: 042
     Dates: start: 20090303
  2. AZATHIOPRINE [Concomitant]
  3. ACETYLSALICYLIC ACID [Concomitant]

REACTIONS (1)
  - PULMONARY HYPERTENSION [None]
